FAERS Safety Report 19592846 (Version 1)
Quarter: 2021Q3

REPORT INFORMATION
  Report Type: Spontaneous
  Country: US (occurrence: US)
  Receive Date: 20210722
  Receipt Date: 20210722
  Transmission Date: 20211014
  Serious: No
  Sender: FDA-Public Use
  Company Number: US-BIOGEN-2021BI01030028

PATIENT
  Age: 44 Year
  Sex: Female

DRUGS (2)
  1. VUMERITY [Suspect]
     Active Substance: DIROXIMEL FUMARATE
     Route: 065
     Dates: start: 20210705
  2. VUMERITY [Suspect]
     Active Substance: DIROXIMEL FUMARATE
     Indication: MULTIPLE SCLEROSIS
     Route: 048
     Dates: start: 20210707

REACTIONS (2)
  - Product dose omission issue [Unknown]
  - Memory impairment [Unknown]

NARRATIVE: CASE EVENT DATE: 20210712
